FAERS Safety Report 9799409 (Version 5)
Quarter: 2014Q2

REPORT INFORMATION
  Report Type: Report from Study
  Country: US (occurrence: US)
  Receive Date: 20140106
  Receipt Date: 20140527
  Transmission Date: 20141212
  Serious: No
  Sender: FDA-Public Use
  Company Number: PHEH2013US001321

PATIENT
  Age: 62 Year
  Sex: Female

DRUGS (22)
  1. TASIGNA [Suspect]
     Indication: CHRONIC MYELOID LEUKAEMIA
     Dosage: 400 MG, BID
     Route: 048
     Dates: start: 20120208, end: 20120411
  2. TASIGNA [Suspect]
     Dosage: UNK UKN, UNK
     Route: 048
  3. TASIGNA [Suspect]
     Dosage: 600 MG, DAILY
     Route: 048
     Dates: start: 20120830
  4. TASIGNA [Suspect]
     Dosage: 500 MG (200 MG IN AM AND TWO 150 MG IN NIGHT)
  5. CORTICOSTEROIDS [Concomitant]
     Dosage: UNK UKN, UNK
  6. ADVAIR HFA [Concomitant]
     Dosage: UNK UKN, UNK
  7. ALBUTEROL SULFATE [Concomitant]
     Dosage: UNK UKN, UNK
  8. ASPIRIN [Concomitant]
     Dosage: UNK UKN, UNK
  9. CETIRIZINE HCL [Concomitant]
     Dosage: 10 MG, DAILY
     Route: 048
  10. CLOBETASOL PROPIONATE [Concomitant]
     Dosage: 0.05 %, BID
  11. CYMBALTA [Concomitant]
     Dosage: UNK UKN, UNK
  12. DESOXIMETASONE [Concomitant]
     Dosage: UNK UKN, UNK
  13. FLOVENT [Concomitant]
     Dosage: UNK UKN, UNK
  14. LIPITOR [Concomitant]
     Dosage: 20 MG, DAILY
  15. LISINOPRIL [Concomitant]
     Dosage: 10 MG, DAILY
  16. LOMOTIL                            /00034001/ [Concomitant]
     Dosage: 1 DF, DAILY
  17. LORAZEPAM [Concomitant]
     Dosage: 1 MG, DAILY
  18. METOPROLOL SUCCINATE [Concomitant]
     Dosage: UNK UKN, UNK
  19. PROAIR HFA [Concomitant]
     Dosage: UNK UKN, UNK
  20. STOOL SOFTENER [Concomitant]
     Dosage: UNK UKN, UNK
  21. SYNTHROID [Concomitant]
     Dosage: 75 UG, DAILY
  22. TUSSIONEX PENNKINETIC [Concomitant]
     Dosage: UNK UKN, UNK

REACTIONS (13)
  - Diarrhoea [Recovered/Resolved with Sequelae]
  - Rash [Recovered/Resolved with Sequelae]
  - Blood bilirubin increased [Not Recovered/Not Resolved]
  - Pyrexia [Not Recovered/Not Resolved]
  - Muscle spasms [Not Recovered/Not Resolved]
  - Myalgia [Not Recovered/Not Resolved]
  - Oral pain [Unknown]
  - Influenza [Recovered/Resolved]
  - Hyperhidrosis [Recovering/Resolving]
  - Dizziness [Unknown]
  - Vertigo [Unknown]
  - Blepharitis [Recovered/Resolved]
  - Rash generalised [Unknown]
